FAERS Safety Report 7439554-X (Version None)
Quarter: 2011Q2

REPORT INFORMATION
  Report Type: 
  Country: None (occurrence: None)
  Receive Date: 20110427
  Receipt Date: 20110425
  Transmission Date: 20111010
  Serious: Yes (Hospitalization)
  Sender: FDA-Public Use
  Company Number: JP-PFIZER INC-2011089968

PATIENT
  Age: 37 Year
  Sex: Female

DRUGS (3)
  1. ZYPREXA [Concomitant]
     Dosage: 28 TABLETS
     Route: 048
  2. SILECE [Concomitant]
     Dosage: 28 TABLETS
     Route: 048
  3. ZOLOFT [Suspect]
     Dosage: 700 MG, UNK
     Route: 048

REACTIONS (2)
  - OVERDOSE [None]
  - ALTERED STATE OF CONSCIOUSNESS [None]
